FAERS Safety Report 23890859 (Version 2)
Quarter: 2024Q2

REPORT INFORMATION
  Report Type: Spontaneous
  Country: DZ (occurrence: DZ)
  Receive Date: 20240523
  Receipt Date: 20240603
  Transmission Date: 20240715
  Serious: Yes (Life-Threatening, Other)
  Sender: FDA-Public Use
  Company Number: DZ-MYLANLABS-2024M1047150

PATIENT
  Age: 38 Year
  Sex: Female

DRUGS (1)
  1. CARBOPLATIN [Suspect]
     Active Substance: CARBOPLATIN
     Indication: Ovarian cancer
     Dosage: UNK
     Route: 065
     Dates: start: 20231211, end: 20231218

REACTIONS (3)
  - Anaphylactic shock [Recovering/Resolving]
  - Cardiac arrest [Recovering/Resolving]
  - Bronchospasm [Recovering/Resolving]

NARRATIVE: CASE EVENT DATE: 20231218
